FAERS Safety Report 16727137 (Version 3)
Quarter: 2020Q1

REPORT INFORMATION
  Report Type: Report from Study
  Country: NZ (occurrence: NZ)
  Receive Date: 20190822
  Receipt Date: 20200113
  Transmission Date: 20200409
  Serious: Yes (Other)
  Sender: FDA-Public Use
  Company Number: NZ-AMGEN-NZLCT2019131016

PATIENT
  Age: 45 Year
  Weight: 94.1 kg

DRUGS (15)
  1. COTRIMOXAZOLE [Concomitant]
     Active Substance: SULFAMETHOXAZOLE\TRIMETHOPRIM
     Dosage: UNK
  2. CARFILZOMIB [Suspect]
     Active Substance: CARFILZOMIB
     Dosage: 56 MILLIGRAM/SQ. METER, PER CHEMO REGIM
     Route: 042
  3. CARFILZOMIB [Suspect]
     Active Substance: CARFILZOMIB
     Dosage: UNK UNK, PER CHEMO REGIM
     Route: 042
     Dates: start: 20190619
  4. CYCLOPHOSPHAMIDE. [Suspect]
     Active Substance: CYCLOPHOSPHAMIDE
     Dosage: UNK UNK, PER CHEMO REGIM
     Route: 048
     Dates: start: 20190619
  5. VALACICLOVIR [Concomitant]
     Active Substance: VALACYCLOVIR HYDROCHLORIDE
     Indication: PROPHYLAXIS
     Dosage: 500 MILLIGRAM, QD
     Route: 048
     Dates: start: 20190218
  6. ASPIRIN [ACETYLSALICYLIC ACID] [Concomitant]
     Active Substance: ASPIRIN
     Indication: PROPHYLAXIS
     Dosage: 100 MILLIGRAM, QD
     Route: 048
     Dates: start: 20190218
  7. DEXAMETHASONE. [Suspect]
     Active Substance: DEXAMETHASONE
     Indication: PLASMA CELL MYELOMA
     Dosage: 20 MILLIGRAM, PER CHEMO REGIM
     Route: 048
     Dates: start: 20190218, end: 20190522
  8. DEXAMETHASONE. [Suspect]
     Active Substance: DEXAMETHASONE
     Dosage: UNK, PER CHEMO REGIM
     Route: 048
     Dates: start: 20190619
  9. ALLOPURINOL. [Concomitant]
     Active Substance: ALLOPURINOL
     Dosage: UNK
  10. CYCLOPHOSPHAMIDE. [Suspect]
     Active Substance: CYCLOPHOSPHAMIDE
     Indication: PLASMA CELL MYELOMA
     Dosage: 600 MILLIGRAM, PER CHEMO REGIM
     Route: 048
     Dates: start: 20190218, end: 20190521
  11. LAMIVUDINE. [Concomitant]
     Active Substance: LAMIVUDINE
     Indication: PROPHYLAXIS
     Dosage: 100 MILLIGRAM, QD
     Route: 048
     Dates: start: 20190506
  12. NACL [Concomitant]
     Active Substance: SODIUM CHLORIDE
     Dosage: 500 MILLILITER
     Route: 042
     Dates: start: 20190218
  13. CARFILZOMIB [Suspect]
     Active Substance: CARFILZOMIB
     Indication: PLASMA CELL MYELOMA
     Dosage: 20 MILLIGRAM/SQ. METER, PER CHEMO REGIM
     Route: 042
     Dates: start: 20190218, end: 20190522
  14. PENTAMIDINE [Concomitant]
     Active Substance: PENTAMIDINE
     Dosage: UNK
  15. PAMIDRONATE [Concomitant]
     Active Substance: PAMIDRONATE DISODIUM
     Dosage: UNK

REACTIONS (1)
  - Gamma-glutamyltransferase increased [Recovered/Resolved]

NARRATIVE: CASE EVENT DATE: 20190530
